FAERS Safety Report 23822533 (Version 1)
Quarter: 2024Q2

REPORT INFORMATION
  Report Type: Other
  Country: CN (occurrence: CN)
  Receive Date: 20240506
  Receipt Date: 20240506
  Transmission Date: 20240716
  Serious: Yes (Other)
  Sender: FDA-Public Use
  Company Number: CN-GE HEALTHCARE-2024CSU004485

PATIENT
  Age: 56 Year
  Sex: Female
  Weight: 70 kg

DRUGS (2)
  1. OMNIPAQUE [Suspect]
     Active Substance: IOHEXOL
     Indication: Venogram
     Dosage: UNK UNK, TOTAL
     Route: 042
     Dates: start: 20240321, end: 20240321
  2. OMNIPAQUE [Suspect]
     Active Substance: IOHEXOL
     Dosage: UNK, TOTAL
     Route: 042
     Dates: start: 20240322, end: 20240322

REACTIONS (1)
  - Transaminases increased [Unknown]

NARRATIVE: CASE EVENT DATE: 20240322
